FAERS Safety Report 9254200 (Version 1)
Quarter: 2013Q2

REPORT INFORMATION
  Report Type: Spontaneous
  Country: US (occurrence: None)
  Receive Date: 20130416
  Receipt Date: 20130416
  Transmission Date: 20140414
  Serious: No
  Sender: FDA-Public Use
  Company Number: A13-035

PATIENT
  Age: 16 Year
  Sex: Male
  Weight: 71 kg

DRUGS (3)
  1. POLLENS - GRASSES, BAHIA GRASS PASPALUM NOTATUM [Suspect]
     Indication: IMMUNODEFICIENCY
     Dosage: 0.5CC; ONCE, 057
     Dates: start: 20130205
  2. MOLDS - MOLD MIX 10 [Suspect]
     Indication: IMMUNODEFICIENCY
     Dosage: 0.02CC; ONCE; 57
     Dates: start: 20130205
  3. CAFFEINE; UNKNOWN, ALEVE, UNKNOWN [Concomitant]

REACTIONS (1)
  - Urticaria [None]
